FAERS Safety Report 12107868 (Version 1)
Quarter: 2016Q1

REPORT INFORMATION
  Report Type: Spontaneous
  Country: US (occurrence: US)
  Receive Date: 20160224
  Receipt Date: 20160224
  Transmission Date: 20160526
  Serious: Yes (Other)
  Sender: FDA-Public Use
  Company Number: US-FDC LIMITED-2016RIS00017

PATIENT
  Sex: Female
  Weight: 58.96 kg

DRUGS (4)
  1. OFLOXACIN. [Suspect]
     Active Substance: OFLOXACIN
     Indication: EYE INFECTION
     Dosage: 1 GTT TO BOTH EYES, 4-5X/DAY
     Route: 047
  2. OFLOXACIN. [Suspect]
     Active Substance: OFLOXACIN
     Indication: CORNEAL ABRASION
  3. UNSPECIFIED HYPERTENSION MEDICATION(S) [Concomitant]
  4. OFLOXACIN. [Suspect]
     Active Substance: OFLOXACIN
     Indication: DRY EYE

REACTIONS (5)
  - Blindness [Not Recovered/Not Resolved]
  - Weight decreased [Unknown]
  - Corneal disorder [Not Recovered/Not Resolved]
  - Drug ineffective for unapproved indication [Not Recovered/Not Resolved]
  - Drug ineffective [Not Recovered/Not Resolved]
